FAERS Safety Report 25528167 (Version 1)
Quarter: 2025Q3

REPORT INFORMATION
  Report Type: Spontaneous
  Country: EU (occurrence: EU)
  Receive Date: 20250708
  Receipt Date: 20250708
  Transmission Date: 20251021
  Serious: Yes (Other)
  Sender: RANBAXY
  Company Number: EU-SUN PHARMACEUTICAL INDUSTRIES LTD-2025RR-515636

PATIENT
  Age: 38 Year
  Sex: Female
  Weight: 60 kg

DRUGS (1)
  1. BUPROPION [Suspect]
     Active Substance: BUPROPION
     Indication: Attention deficit hyperactivity disorder
     Dosage: 1 PIECE ONCE A DAY
     Route: 048
     Dates: start: 20250207, end: 20250227

REACTIONS (6)
  - Rash erythematous [Recovering/Resolving]
  - Acute generalised exanthematous pustulosis [Recovering/Resolving]
  - Pyrexia [Recovering/Resolving]
  - Rash pustular [Recovering/Resolving]
  - Ear swelling [Recovering/Resolving]
  - Lymphadenopathy [Recovering/Resolving]
